FAERS Safety Report 20292072 (Version 1)
Quarter: 2022Q1

REPORT INFORMATION
  Report Type: Spontaneous
  Country: US (occurrence: US)
  Receive Date: 20220104
  Receipt Date: 20220104
  Transmission Date: 20220423
  Serious: No
  Sender: FDA-Public Use
  Company Number: US-PFIZER INC-202101541820

PATIENT
  Age: 64 Year
  Sex: Female
  Weight: 63.492 kg

DRUGS (18)
  1. PRISTIQ EXTENDED-RELEASE [Suspect]
     Active Substance: DESVENLAFAXINE SUCCINATE
     Indication: Coagulopathy
     Dosage: 50 MG
  2. PRISTIQ EXTENDED-RELEASE [Suspect]
     Active Substance: DESVENLAFAXINE SUCCINATE
     Dosage: 100 MG, 1X/DAY
     Route: 048
     Dates: start: 2021, end: 202108
  3. AMBIEN CR [Concomitant]
     Active Substance: ZOLPIDEM TARTRATE
     Dosage: 10 MG, AS NEEDED (AT NIGHT)
     Route: 048
  4. ASPIRIN [Concomitant]
     Active Substance: ASPIRIN
     Dosage: 1 DF, 1X/DAY
     Route: 048
  5. ELIQUIS [Concomitant]
     Active Substance: APIXABAN
     Dosage: 5 MG, 2X/DAY
     Route: 048
     Dates: start: 2018
  6. IBUPROFEN [Concomitant]
     Active Substance: IBUPROFEN
     Dosage: 600 MG (TAKE 1 TABLET ORALLY EVERY 8 HOURS)
     Route: 048
  7. MELATONIN [Concomitant]
     Active Substance: MELATONIN
     Dosage: 1 DF, 1X/DAY AT NIGHT
     Route: 048
  8. MIDODRINE [Concomitant]
     Active Substance: MIDODRINE
     Dosage: 1 DF, 3X/DAY UPSHER-SMITH
  9. NEXIUM [Concomitant]
     Active Substance: ESOMEPRAZOLE MAGNESIUM
     Dosage: 1 DF, 2X/DAY
     Route: 048
  10. POTASSIUM CHLORIDE [Concomitant]
     Active Substance: POTASSIUM CHLORIDE
     Dosage: 1 DF, 1X/DAY
     Route: 048
  11. PROAIR HFA [Concomitant]
     Active Substance: ALBUTEROL SULFATE
     Dosage: 2 DF, AS NEEDED, 2 PUFFS BY MOUTH 2 TIMES DAILY
     Route: 048
  12. SYMBICORT [Concomitant]
     Active Substance: BUDESONIDE\FORMOTEROL FUMARATE DIHYDRATE
     Dosage: 1 DF, 2X/DAY
     Route: 048
  13. TORSEMIDE [Concomitant]
     Active Substance: TORSEMIDE
     Dosage: 20 MG (TAKE 1 TABLET ORALLY 3 TIMES A WEEK)
     Route: 048
  14. TORSEMIDE [Concomitant]
     Active Substance: TORSEMIDE
     Dosage: 20 MG (TAKE 1 TABLET ORALLY 3 TIMES A WEEK)
     Route: 048
  15. VITAMIN B12 [Concomitant]
     Active Substance: CYANOCOBALAMIN
     Dosage: 5000 UG, 1X/DAY (5000 MCG LIQUID ONCE DAILY)
  16. ALPRAZOLAM [Concomitant]
     Active Substance: ALPRAZOLAM
     Dosage: 3 MG, 1X/DAY (TABLET ORALLY ONCE A DAY 1/2 MRN (MORNING) 1/2 AFTERNOON + 2(1MG) AT NIGHT)
     Route: 048
  17. XYZAL [Concomitant]
     Active Substance: LEVOCETIRIZINE DIHYDROCHLORIDE
     Dosage: 5 MG, AS NEEDED (1 TABLET ORALLY ONCE A DAY AS NEEDED)
  18. ZITHROMAX [Concomitant]
     Active Substance: AZITHROMYCIN DIHYDRATE
     Indication: Dyspnoea
     Dosage: UNK

REACTIONS (4)
  - Off label use [Unknown]
  - Crying [Recovered/Resolved]
  - Depression [Recovered/Resolved]
  - Blood triglycerides increased [Unknown]
